FAERS Safety Report 6723057-1 (Version None)
Quarter: 2010Q2

REPORT INFORMATION
  Report Type: 
  Country: None (occurrence: None)
  Receive Date: 20100513
  Receipt Date: 20100505
  Transmission Date: 20101027
  Serious: No
  Sender: FDA-Public Use
  Company Number: US-BIOGENIDEC-2010BI015292

PATIENT
  Age: 45 Year
  Sex: Male

DRUGS (2)
  1. AVONEX [Suspect]
     Indication: MULTIPLE SCLEROSIS
     Route: 030
     Dates: start: 20040311
  2. NALTREXONE HYDROCHLORIDE [Concomitant]
     Dates: start: 20100504

REACTIONS (4)
  - ABASIA [None]
  - BALANCE DISORDER [None]
  - CHILLS [None]
  - DIZZINESS [None]
